FAERS Safety Report 21036431 (Version 10)
Quarter: 2024Q2

REPORT INFORMATION
  Report Type: Spontaneous
  Country: CA (occurrence: CA)
  Receive Date: 20220702
  Receipt Date: 20240405
  Transmission Date: 20240716
  Serious: Yes (Congenital Anomaly)
  Sender: FDA-Public Use
  Company Number: CA-BRISTOL-MYERS SQUIBB COMPANY-2022-050444

PATIENT

DRUGS (667)
  1. ORENCIA [Suspect]
     Active Substance: ABATACEPT
     Indication: Product used for unknown indication
     Route: 064
  2. ORENCIA [Suspect]
     Active Substance: ABATACEPT
     Route: 064
  3. ORENCIA [Suspect]
     Active Substance: ABATACEPT
     Route: 064
  4. ORENCIA [Suspect]
     Active Substance: ABATACEPT
     Route: 064
  5. ORENCIA [Suspect]
     Active Substance: ABATACEPT
     Route: 064
  6. ORENCIA [Suspect]
     Active Substance: ABATACEPT
     Indication: Product used for unknown indication
     Route: 064
  7. ORENCIA [Suspect]
     Active Substance: ABATACEPT
     Route: 064
  8. ORENCIA [Suspect]
     Active Substance: ABATACEPT
     Route: 064
  9. ORENCIA [Suspect]
     Active Substance: ABATACEPT
     Route: 064
  10. ORENCIA [Suspect]
     Active Substance: ABATACEPT
     Route: 064
  11. ORENCIA [Suspect]
     Active Substance: ABATACEPT
     Route: 064
  12. ORENCIA [Suspect]
     Active Substance: ABATACEPT
     Route: 064
  13. ORENCIA [Suspect]
     Active Substance: ABATACEPT
     Route: 064
  14. ORENCIA [Suspect]
     Active Substance: ABATACEPT
     Route: 064
  15. ORENCIA [Suspect]
     Active Substance: ABATACEPT
     Route: 064
  16. ORENCIA [Suspect]
     Active Substance: ABATACEPT
     Route: 064
  17. ORENCIA [Suspect]
     Active Substance: ABATACEPT
     Route: 064
  18. ORENCIA [Suspect]
     Active Substance: ABATACEPT
     Route: 064
  19. ORENCIA [Suspect]
     Active Substance: ABATACEPT
     Route: 064
  20. ORENCIA [Suspect]
     Active Substance: ABATACEPT
     Route: 064
  21. ORENCIA [Suspect]
     Active Substance: ABATACEPT
     Route: 064
  22. ORENCIA [Suspect]
     Active Substance: ABATACEPT
     Indication: Product used for unknown indication
     Route: 064
  23. ORENCIA [Suspect]
     Active Substance: ABATACEPT
     Route: 064
  24. ORENCIA [Suspect]
     Active Substance: ABATACEPT
     Route: 064
  25. ORENCIA [Suspect]
     Active Substance: ABATACEPT
     Route: 064
  26. ORENCIA [Suspect]
     Active Substance: ABATACEPT
     Route: 064
  27. ORENCIA [Suspect]
     Active Substance: ABATACEPT
     Route: 064
  28. ORENCIA [Suspect]
     Active Substance: ABATACEPT
     Route: 064
  29. ORENCIA [Suspect]
     Active Substance: ABATACEPT
     Indication: Product used for unknown indication
     Route: 064
  30. ORENCIA [Suspect]
     Active Substance: ABATACEPT
     Route: 064
  31. ORENCIA [Suspect]
     Active Substance: ABATACEPT
     Route: 064
  32. ORENCIA [Suspect]
     Active Substance: ABATACEPT
     Route: 064
  33. ORENCIA [Suspect]
     Active Substance: ABATACEPT
     Route: 064
  34. ORENCIA [Suspect]
     Active Substance: ABATACEPT
     Route: 064
  35. ORENCIA [Suspect]
     Active Substance: ABATACEPT
     Route: 064
  36. ORENCIA [Suspect]
     Active Substance: ABATACEPT
     Route: 064
  37. TRIAMCINOLONE ACETONIDE [Suspect]
     Active Substance: TRIAMCINOLONE ACETONIDE
     Indication: Product used for unknown indication
     Dosage: SUSPENSION INTRA-ARTICULAR
     Route: 064
  38. TRIAMCINOLONE ACETONIDE [Suspect]
     Active Substance: TRIAMCINOLONE ACETONIDE
     Dosage: SUSPENSION INTRA-ARTICULAR
     Route: 064
  39. TRIAMCINOLONE ACETONIDE [Suspect]
     Active Substance: TRIAMCINOLONE ACETONIDE
     Dosage: SUSPENSION INTRA-ARTICULAR
     Route: 064
  40. ACETAMINOPHEN [Concomitant]
     Active Substance: ACETAMINOPHEN
     Indication: Product used for unknown indication
     Route: 064
  41. ACETAMINOPHEN [Concomitant]
     Active Substance: ACETAMINOPHEN
     Route: 064
  42. ACETAMINOPHEN [Concomitant]
     Active Substance: ACETAMINOPHEN
     Route: 064
  43. ACETAMINOPHEN [Concomitant]
     Active Substance: ACETAMINOPHEN
     Route: 064
  44. ACTEMRA [Concomitant]
     Active Substance: TOCILIZUMAB
     Indication: Product used for unknown indication
     Route: 064
  45. ACTEMRA [Concomitant]
     Active Substance: TOCILIZUMAB
     Route: 064
  46. ACTEMRA [Concomitant]
     Active Substance: TOCILIZUMAB
     Route: 064
  47. ACTEMRA [Concomitant]
     Active Substance: TOCILIZUMAB
     Route: 064
  48. ACTEMRA [Concomitant]
     Active Substance: TOCILIZUMAB
     Route: 064
  49. ACTEMRA [Concomitant]
     Active Substance: TOCILIZUMAB
     Route: 064
  50. ACTEMRA [Concomitant]
     Active Substance: TOCILIZUMAB
     Route: 064
  51. ACTEMRA [Concomitant]
     Active Substance: TOCILIZUMAB
     Route: 064
  52. ACTEMRA [Concomitant]
     Active Substance: TOCILIZUMAB
     Route: 064
  53. ACTEMRA [Concomitant]
     Active Substance: TOCILIZUMAB
     Route: 064
  54. ACTEMRA [Concomitant]
     Active Substance: TOCILIZUMAB
     Route: 064
  55. ACTEMRA [Concomitant]
     Active Substance: TOCILIZUMAB
     Route: 064
  56. ACTEMRA [Concomitant]
     Active Substance: TOCILIZUMAB
     Route: 064
  57. ACTEMRA [Concomitant]
     Active Substance: TOCILIZUMAB
     Route: 064
  58. ACTEMRA [Concomitant]
     Active Substance: TOCILIZUMAB
     Route: 064
  59. ACTEMRA [Concomitant]
     Active Substance: TOCILIZUMAB
     Route: 064
  60. ACTEMRA [Concomitant]
     Active Substance: TOCILIZUMAB
     Route: 064
  61. ACTEMRA [Concomitant]
     Active Substance: TOCILIZUMAB
     Route: 064
  62. ACTEMRA [Concomitant]
     Active Substance: TOCILIZUMAB
     Route: 064
  63. ACTEMRA [Concomitant]
     Active Substance: TOCILIZUMAB
     Route: 064
  64. ACTEMRA [Concomitant]
     Active Substance: TOCILIZUMAB
     Route: 064
  65. ACTEMRA [Concomitant]
     Active Substance: TOCILIZUMAB
     Route: 064
  66. ACTEMRA [Concomitant]
     Active Substance: TOCILIZUMAB
     Route: 064
  67. ACTEMRA [Concomitant]
     Active Substance: TOCILIZUMAB
     Route: 064
  68. ACTEMRA [Concomitant]
     Active Substance: TOCILIZUMAB
     Route: 064
  69. ACTEMRA [Concomitant]
     Active Substance: TOCILIZUMAB
     Route: 064
  70. ACTEMRA [Concomitant]
     Active Substance: TOCILIZUMAB
     Route: 064
  71. ACTEMRA [Concomitant]
     Active Substance: TOCILIZUMAB
     Route: 064
  72. ACTEMRA [Concomitant]
     Active Substance: TOCILIZUMAB
     Route: 064
  73. ACTEMRA [Concomitant]
     Active Substance: TOCILIZUMAB
     Route: 064
  74. ACTEMRA [Concomitant]
     Active Substance: TOCILIZUMAB
     Route: 064
  75. ACTEMRA [Concomitant]
     Active Substance: TOCILIZUMAB
     Route: 064
  76. ACTEMRA [Concomitant]
     Active Substance: TOCILIZUMAB
     Route: 064
  77. ACTEMRA [Concomitant]
     Active Substance: TOCILIZUMAB
     Route: 064
  78. ACTEMRA [Concomitant]
     Active Substance: TOCILIZUMAB
     Route: 064
  79. ACTEMRA [Concomitant]
     Active Substance: TOCILIZUMAB
     Route: 064
  80. ACTEMRA [Concomitant]
     Active Substance: TOCILIZUMAB
     Route: 064
  81. ACTEMRA [Concomitant]
     Active Substance: TOCILIZUMAB
     Route: 064
  82. ACTEMRA [Concomitant]
     Active Substance: TOCILIZUMAB
     Route: 064
  83. ACTEMRA [Concomitant]
     Active Substance: TOCILIZUMAB
     Route: 064
  84. ACTEMRA [Concomitant]
     Active Substance: TOCILIZUMAB
     Route: 064
  85. ACTEMRA [Concomitant]
     Active Substance: TOCILIZUMAB
     Route: 064
  86. ACTEMRA [Concomitant]
     Active Substance: TOCILIZUMAB
     Route: 064
  87. ACTEMRA [Concomitant]
     Active Substance: TOCILIZUMAB
     Route: 064
  88. ACTEMRA [Concomitant]
     Active Substance: TOCILIZUMAB
     Route: 064
  89. ALENDRONATE SODIUM [Concomitant]
     Active Substance: ALENDRONATE SODIUM
     Indication: Product used for unknown indication
     Route: 064
  90. ALENDRONATE SODIUM [Concomitant]
     Active Substance: ALENDRONATE SODIUM
     Route: 064
  91. ALENDRONATE SODIUM [Concomitant]
     Active Substance: ALENDRONATE SODIUM
     Route: 064
  92. APREMILAST [Concomitant]
     Active Substance: APREMILAST
     Indication: Product used for unknown indication
     Route: 064
  93. APREMILAST [Concomitant]
     Active Substance: APREMILAST
     Route: 064
  94. APREMILAST [Concomitant]
     Active Substance: APREMILAST
     Route: 064
  95. ARAVA [Concomitant]
     Active Substance: LEFLUNOMIDE
     Indication: Product used for unknown indication
     Route: 064
  96. ARAVA [Concomitant]
     Active Substance: LEFLUNOMIDE
     Route: 064
  97. ARAVA [Concomitant]
     Active Substance: LEFLUNOMIDE
     Route: 064
  98. ARAVA [Concomitant]
     Active Substance: LEFLUNOMIDE
     Route: 064
  99. ARAVA [Concomitant]
     Active Substance: LEFLUNOMIDE
     Route: 064
  100. ARAVA [Concomitant]
     Active Substance: LEFLUNOMIDE
     Route: 064
  101. ARAVA [Concomitant]
     Active Substance: LEFLUNOMIDE
     Route: 064
  102. CETIRIZINE HYDROCHLORIDE [Concomitant]
     Active Substance: CETIRIZINE HYDROCHLORIDE
     Indication: Product used for unknown indication
     Route: 064
  103. CETIRIZINE HYDROCHLORIDE [Concomitant]
     Active Substance: CETIRIZINE HYDROCHLORIDE
     Route: 064
  104. CETIRIZINE HYDROCHLORIDE [Concomitant]
     Active Substance: CETIRIZINE HYDROCHLORIDE
     Route: 064
  105. CETIRIZINE HYDROCHLORIDE [Concomitant]
     Active Substance: CETIRIZINE HYDROCHLORIDE
     Route: 064
  106. CETIRIZINE HYDROCHLORIDE [Concomitant]
     Active Substance: CETIRIZINE HYDROCHLORIDE
     Route: 064
  107. CETIRIZINE HYDROCHLORIDE [Concomitant]
     Active Substance: CETIRIZINE HYDROCHLORIDE
     Route: 064
  108. CETIRIZINE HYDROCHLORIDE [Concomitant]
     Active Substance: CETIRIZINE HYDROCHLORIDE
     Route: 064
  109. CETIRIZINE HYDROCHLORIDE [Concomitant]
     Active Substance: CETIRIZINE HYDROCHLORIDE
     Route: 064
  110. CETIRIZINE HYDROCHLORIDE [Concomitant]
     Active Substance: CETIRIZINE HYDROCHLORIDE
     Route: 064
  111. CETIRIZINE HYDROCHLORIDE [Concomitant]
     Active Substance: CETIRIZINE HYDROCHLORIDE
     Route: 064
  112. CETIRIZINE HYDROCHLORIDE [Concomitant]
     Active Substance: CETIRIZINE HYDROCHLORIDE
     Route: 064
  113. CETIRIZINE HYDROCHLORIDE [Concomitant]
     Active Substance: CETIRIZINE HYDROCHLORIDE
     Route: 064
  114. CETIRIZINE HYDROCHLORIDE [Concomitant]
     Active Substance: CETIRIZINE HYDROCHLORIDE
     Route: 064
  115. CETIRIZINE HYDROCHLORIDE [Concomitant]
     Active Substance: CETIRIZINE HYDROCHLORIDE
     Route: 064
  116. CETIRIZINE HYDROCHLORIDE [Concomitant]
     Active Substance: CETIRIZINE HYDROCHLORIDE
     Route: 064
  117. CETIRIZINE HYDROCHLORIDE [Concomitant]
     Active Substance: CETIRIZINE HYDROCHLORIDE
     Route: 064
  118. CETIRIZINE HYDROCHLORIDE [Concomitant]
     Active Substance: CETIRIZINE HYDROCHLORIDE
     Route: 064
  119. CETIRIZINE HYDROCHLORIDE [Concomitant]
     Active Substance: CETIRIZINE HYDROCHLORIDE
     Route: 064
  120. CETIRIZINE HYDROCHLORIDE [Concomitant]
     Active Substance: CETIRIZINE HYDROCHLORIDE
     Route: 064
  121. CETIRIZINE HYDROCHLORIDE [Concomitant]
     Active Substance: CETIRIZINE HYDROCHLORIDE
     Route: 064
  122. CETIRIZINE HYDROCHLORIDE [Concomitant]
     Active Substance: CETIRIZINE HYDROCHLORIDE
     Route: 064
  123. CETIRIZINE HYDROCHLORIDE [Concomitant]
     Active Substance: CETIRIZINE HYDROCHLORIDE
     Route: 064
  124. CETIRIZINE HYDROCHLORIDE [Concomitant]
     Active Substance: CETIRIZINE HYDROCHLORIDE
     Route: 064
  125. CETIRIZINE HYDROCHLORIDE [Concomitant]
     Active Substance: CETIRIZINE HYDROCHLORIDE
     Route: 064
  126. CETIRIZINE HYDROCHLORIDE [Concomitant]
     Active Substance: CETIRIZINE HYDROCHLORIDE
     Route: 064
  127. CETIRIZINE HYDROCHLORIDE [Concomitant]
     Active Substance: CETIRIZINE HYDROCHLORIDE
     Route: 064
  128. CIMZIA [Concomitant]
     Active Substance: CERTOLIZUMAB PEGOL
     Indication: Product used for unknown indication
     Route: 064
  129. CIMZIA [Concomitant]
     Active Substance: CERTOLIZUMAB PEGOL
     Route: 064
  130. CIMZIA [Concomitant]
     Active Substance: CERTOLIZUMAB PEGOL
     Route: 064
  131. CIMZIA [Concomitant]
     Active Substance: CERTOLIZUMAB PEGOL
     Route: 064
  132. CIMZIA [Concomitant]
     Active Substance: CERTOLIZUMAB PEGOL
     Route: 064
  133. CIMZIA [Concomitant]
     Active Substance: CERTOLIZUMAB PEGOL
     Route: 064
  134. CIMZIA [Concomitant]
     Active Substance: CERTOLIZUMAB PEGOL
     Route: 064
  135. CIMZIA [Concomitant]
     Active Substance: CERTOLIZUMAB PEGOL
     Route: 064
  136. CIMZIA [Concomitant]
     Active Substance: CERTOLIZUMAB PEGOL
     Route: 064
  137. CIMZIA [Concomitant]
     Active Substance: CERTOLIZUMAB PEGOL
     Route: 064
  138. CORTISONE ACETATE [Concomitant]
     Active Substance: CORTISONE ACETATE
     Indication: Product used for unknown indication
     Route: 064
  139. CORTISONE ACETATE [Concomitant]
     Active Substance: CORTISONE ACETATE
     Route: 064
  140. CORTISONE ACETATE [Concomitant]
     Active Substance: CORTISONE ACETATE
     Route: 064
  141. CORTISONE ACETATE [Concomitant]
     Active Substance: CORTISONE ACETATE
     Route: 064
  142. CORTISONE ACETATE [Concomitant]
     Active Substance: CORTISONE ACETATE
     Route: 064
  143. CORTISONE ACETATE [Concomitant]
     Active Substance: CORTISONE ACETATE
     Route: 064
  144. COSENTYX [Concomitant]
     Active Substance: SECUKINUMAB
     Indication: Product used for unknown indication
     Route: 064
  145. COSENTYX [Concomitant]
     Active Substance: SECUKINUMAB
     Route: 064
  146. COSENTYX [Concomitant]
     Active Substance: SECUKINUMAB
     Route: 064
  147. COSENTYX [Concomitant]
     Active Substance: SECUKINUMAB
     Route: 064
  148. DESOXIMETASONE [Concomitant]
     Active Substance: DESOXIMETASONE
     Indication: Product used for unknown indication
     Route: 064
  149. DESOXIMETASONE [Concomitant]
     Active Substance: DESOXIMETASONE
     Route: 064
  150. DESOXIMETASONE [Concomitant]
     Active Substance: DESOXIMETASONE
     Route: 064
  151. DESOXIMETASONE [Concomitant]
     Active Substance: DESOXIMETASONE
     Route: 064
  152. DESOXIMETASONE [Concomitant]
     Active Substance: DESOXIMETASONE
     Route: 064
  153. DESOXIMETASONE [Concomitant]
     Active Substance: DESOXIMETASONE
     Route: 064
  154. DESOXIMETASONE [Concomitant]
     Active Substance: DESOXIMETASONE
     Route: 064
  155. DESOXIMETASONE [Concomitant]
     Active Substance: DESOXIMETASONE
     Route: 064
  156. DESOXIMETASONE [Concomitant]
     Active Substance: DESOXIMETASONE
     Route: 064
  157. DESOXIMETASONE [Concomitant]
     Active Substance: DESOXIMETASONE
     Route: 064
  158. DESOXIMETASONE [Concomitant]
     Active Substance: DESOXIMETASONE
     Route: 064
  159. DESOXIMETASONE [Concomitant]
     Active Substance: DESOXIMETASONE
     Route: 064
  160. DESOXIMETASONE [Concomitant]
     Active Substance: DESOXIMETASONE
     Route: 064
  161. DESOXIMETASONE [Concomitant]
     Active Substance: DESOXIMETASONE
     Route: 064
  162. DESOXIMETASONE [Concomitant]
     Active Substance: DESOXIMETASONE
     Route: 064
  163. DICLOFENAC SODIUM [Concomitant]
     Active Substance: DICLOFENAC\DICLOFENAC SODIUM
     Indication: Product used for unknown indication
     Route: 064
  164. DICLOFENAC SODIUM [Concomitant]
     Active Substance: DICLOFENAC\DICLOFENAC SODIUM
     Route: 064
  165. DICLOFENAC SODIUM [Concomitant]
     Active Substance: DICLOFENAC\DICLOFENAC SODIUM
     Route: 064
  166. ENBREL [Concomitant]
     Active Substance: ETANERCEPT
     Indication: Product used for unknown indication
     Route: 064
  167. ENBREL [Concomitant]
     Active Substance: ETANERCEPT
     Route: 064
  168. ENBREL [Concomitant]
     Active Substance: ETANERCEPT
     Route: 064
  169. ENBREL [Concomitant]
     Active Substance: ETANERCEPT
     Route: 064
  170. ENBREL [Concomitant]
     Active Substance: ETANERCEPT
     Route: 064
  171. ENBREL [Concomitant]
     Active Substance: ETANERCEPT
     Route: 064
  172. ENBREL [Concomitant]
     Active Substance: ETANERCEPT
     Route: 064
  173. ENBREL [Concomitant]
     Active Substance: ETANERCEPT
     Route: 064
  174. ENBREL [Concomitant]
     Active Substance: ETANERCEPT
     Route: 064
  175. ENBREL [Concomitant]
     Active Substance: ETANERCEPT
     Route: 064
  176. ENBREL [Concomitant]
     Active Substance: ETANERCEPT
     Route: 064
  177. ENBREL [Concomitant]
     Active Substance: ETANERCEPT
     Route: 064
  178. ENBREL [Concomitant]
     Active Substance: ETANERCEPT
     Route: 064
  179. ERELZI [Concomitant]
     Active Substance: ETANERCEPT-SZZS
     Indication: Product used for unknown indication
     Route: 064
  180. ERELZI [Concomitant]
     Active Substance: ETANERCEPT-SZZS
     Route: 064
  181. ERELZI [Concomitant]
     Active Substance: ETANERCEPT-SZZS
     Route: 064
  182. ERELZI [Concomitant]
     Active Substance: ETANERCEPT-SZZS
     Route: 064
  183. ERELZI [Concomitant]
     Active Substance: ETANERCEPT-SZZS
     Route: 064
  184. ERELZI [Concomitant]
     Active Substance: ETANERCEPT-SZZS
     Route: 064
  185. FLUMETHASONE PIVALATE [Concomitant]
     Active Substance: FLUMETHASONE PIVALATE
     Indication: Product used for unknown indication
     Route: 064
  186. FLUMETHASONE PIVALATE [Concomitant]
     Active Substance: FLUMETHASONE PIVALATE
     Route: 064
  187. FLUMETHASONE PIVALATE [Concomitant]
     Active Substance: FLUMETHASONE PIVALATE
     Route: 064
  188. FLUMETHASONE PIVALATE [Concomitant]
     Active Substance: FLUMETHASONE PIVALATE
     Route: 064
  189. FLUMETHASONE PIVALATE [Concomitant]
     Active Substance: FLUMETHASONE PIVALATE
     Route: 064
  190. FOLIC ACID [Concomitant]
     Active Substance: FOLIC ACID
     Indication: Product used for unknown indication
     Route: 064
  191. FOLIC ACID [Concomitant]
     Active Substance: FOLIC ACID
     Route: 064
  192. FOLIC ACID [Concomitant]
     Active Substance: FOLIC ACID
     Route: 064
  193. FOLIC ACID [Concomitant]
     Active Substance: FOLIC ACID
     Route: 064
  194. FOLIC ACID [Concomitant]
     Active Substance: FOLIC ACID
     Route: 064
  195. FOLIC ACID [Concomitant]
     Active Substance: FOLIC ACID
     Route: 064
  196. FOLIC ACID [Concomitant]
     Active Substance: FOLIC ACID
     Route: 064
  197. FOLIC ACID [Concomitant]
     Active Substance: FOLIC ACID
     Route: 064
  198. FOLIC ACID [Concomitant]
     Active Substance: FOLIC ACID
     Route: 064
  199. FOLIC ACID [Concomitant]
     Active Substance: FOLIC ACID
     Route: 064
  200. FOLIC ACID [Concomitant]
     Active Substance: FOLIC ACID
     Route: 064
  201. FOLIC ACID [Concomitant]
     Active Substance: FOLIC ACID
     Route: 064
  202. FOLIC ACID [Concomitant]
     Active Substance: FOLIC ACID
     Route: 064
  203. FOLIC ACID [Concomitant]
     Active Substance: FOLIC ACID
     Route: 064
  204. FOLIC ACID [Concomitant]
     Active Substance: FOLIC ACID
     Route: 064
  205. FOLIC ACID [Concomitant]
     Active Substance: FOLIC ACID
     Route: 064
  206. FOLIC ACID [Concomitant]
     Active Substance: FOLIC ACID
     Route: 064
  207. FOLIC ACID [Concomitant]
     Active Substance: FOLIC ACID
     Route: 064
  208. FOLIC ACID [Concomitant]
     Active Substance: FOLIC ACID
     Route: 064
  209. FOLIC ACID [Concomitant]
     Active Substance: FOLIC ACID
     Route: 064
  210. FOLIC ACID [Concomitant]
     Active Substance: FOLIC ACID
     Route: 064
  211. FOLIC ACID [Concomitant]
     Active Substance: FOLIC ACID
     Route: 064
  212. FOLIC ACID [Concomitant]
     Active Substance: FOLIC ACID
     Route: 064
  213. FOLIC ACID [Concomitant]
     Active Substance: FOLIC ACID
     Route: 064
  214. FOLIC ACID [Concomitant]
     Active Substance: FOLIC ACID
     Route: 064
  215. GOLD [Concomitant]
     Active Substance: GOLD
     Indication: Product used for unknown indication
     Route: 064
  216. FOSAMAX [Concomitant]
     Active Substance: ALENDRONATE SODIUM
     Indication: Product used for unknown indication
     Route: 064
  217. FOSAMAX [Concomitant]
     Active Substance: ALENDRONATE SODIUM
     Route: 064
  218. FOSAMAX [Concomitant]
     Active Substance: ALENDRONATE SODIUM
     Route: 064
  219. FOSAMAX [Concomitant]
     Active Substance: ALENDRONATE SODIUM
     Route: 064
  220. FOSAMAX [Concomitant]
     Active Substance: ALENDRONATE SODIUM
     Route: 064
  221. GOLD SODIUM THIOMALATE [Concomitant]
     Active Substance: GOLD SODIUM THIOMALATE
     Indication: Product used for unknown indication
     Route: 064
  222. HUMIRA [Concomitant]
     Active Substance: ADALIMUMAB
     Indication: Product used for unknown indication
     Route: 064
  223. HUMIRA [Concomitant]
     Active Substance: ADALIMUMAB
     Route: 064
  224. HUMIRA [Concomitant]
     Active Substance: ADALIMUMAB
     Route: 064
  225. HUMIRA [Concomitant]
     Active Substance: ADALIMUMAB
     Route: 064
  226. HUMIRA [Concomitant]
     Active Substance: ADALIMUMAB
     Route: 064
  227. HUMIRA [Concomitant]
     Active Substance: ADALIMUMAB
     Route: 064
  228. HUMIRA [Concomitant]
     Active Substance: ADALIMUMAB
     Route: 064
  229. HUMIRA [Concomitant]
     Active Substance: ADALIMUMAB
     Route: 064
  230. HUMIRA [Concomitant]
     Active Substance: ADALIMUMAB
     Route: 064
  231. HUMIRA [Concomitant]
     Active Substance: ADALIMUMAB
     Route: 064
  232. HUMIRA [Concomitant]
     Active Substance: ADALIMUMAB
     Route: 064
  233. HUMIRA [Concomitant]
     Active Substance: ADALIMUMAB
     Route: 064
  234. KEVZARA [Concomitant]
     Active Substance: SARILUMAB
     Indication: Product used for unknown indication
     Route: 064
  235. LEFLUNOMIDE [Concomitant]
     Active Substance: LEFLUNOMIDE
     Indication: Product used for unknown indication
     Route: 064
  236. LEFLUNOMIDE [Concomitant]
     Active Substance: LEFLUNOMIDE
     Route: 064
  237. LEFLUNOMIDE [Concomitant]
     Active Substance: LEFLUNOMIDE
     Route: 064
  238. LEFLUNOMIDE [Concomitant]
     Active Substance: LEFLUNOMIDE
     Route: 064
  239. LEFLUNOMIDE [Concomitant]
     Active Substance: LEFLUNOMIDE
     Route: 064
  240. LEFLUNOMIDE [Concomitant]
     Active Substance: LEFLUNOMIDE
     Route: 064
  241. LEFLUNOMIDE [Concomitant]
     Active Substance: LEFLUNOMIDE
     Route: 064
  242. LEFLUNOMIDE [Concomitant]
     Active Substance: LEFLUNOMIDE
     Route: 064
  243. LEFLUNOMIDE [Concomitant]
     Active Substance: LEFLUNOMIDE
     Route: 064
  244. LEFLUNOMIDE [Concomitant]
     Active Substance: LEFLUNOMIDE
     Route: 064
  245. METHOTREXATE [Concomitant]
     Active Substance: METHOTREXATE
     Indication: Product used for unknown indication
     Route: 064
  246. METHOTREXATE [Concomitant]
     Active Substance: METHOTREXATE
     Route: 064
  247. METHOTREXATE [Concomitant]
     Active Substance: METHOTREXATE
     Route: 064
  248. METHOTREXATE [Concomitant]
     Active Substance: METHOTREXATE
     Route: 064
  249. METHOTREXATE [Concomitant]
     Active Substance: METHOTREXATE
     Route: 064
  250. METHOTREXATE [Concomitant]
     Active Substance: METHOTREXATE
     Route: 064
  251. METHOTREXATE [Concomitant]
     Active Substance: METHOTREXATE
     Route: 064
  252. METHOTREXATE [Concomitant]
     Active Substance: METHOTREXATE
     Route: 064
  253. METHOTREXATE [Concomitant]
     Active Substance: METHOTREXATE
     Route: 064
  254. METHOTREXATE [Concomitant]
     Active Substance: METHOTREXATE
     Route: 064
  255. METHOTREXATE [Concomitant]
     Active Substance: METHOTREXATE
     Route: 064
  256. METHOTREXATE [Concomitant]
     Active Substance: METHOTREXATE
     Route: 064
  257. METHOTREXATE [Concomitant]
     Active Substance: METHOTREXATE
     Route: 064
  258. METHOTREXATE [Concomitant]
     Active Substance: METHOTREXATE
     Route: 064
  259. METHOTREXATE [Concomitant]
     Active Substance: METHOTREXATE
     Route: 064
  260. METHOTREXATE [Concomitant]
     Active Substance: METHOTREXATE
     Route: 064
  261. METHOTREXATE [Concomitant]
     Active Substance: METHOTREXATE
     Route: 064
  262. METHOTREXATE [Concomitant]
     Active Substance: METHOTREXATE
     Route: 064
  263. METHOTREXATE [Concomitant]
     Active Substance: METHOTREXATE
     Route: 064
  264. METHOTREXATE [Concomitant]
     Active Substance: METHOTREXATE
     Route: 064
  265. METHOTREXATE [Concomitant]
     Active Substance: METHOTREXATE
     Route: 064
  266. METHOTREXATE [Concomitant]
     Active Substance: METHOTREXATE
     Route: 064
  267. METHOTREXATE [Concomitant]
     Active Substance: METHOTREXATE
     Route: 064
  268. METHOTREXATE [Concomitant]
     Active Substance: METHOTREXATE
     Route: 064
  269. METHOTREXATE [Concomitant]
     Active Substance: METHOTREXATE
     Route: 064
  270. METHOTREXATE [Concomitant]
     Active Substance: METHOTREXATE
     Route: 064
  271. METHOTREXATE [Concomitant]
     Active Substance: METHOTREXATE
     Route: 064
  272. METHOTREXATE [Concomitant]
     Active Substance: METHOTREXATE
     Route: 064
  273. METHOTREXATE [Concomitant]
     Active Substance: METHOTREXATE
     Route: 064
  274. METHOTREXATE [Concomitant]
     Active Substance: METHOTREXATE
     Route: 064
  275. METHOTREXATE [Concomitant]
     Active Substance: METHOTREXATE
     Route: 064
  276. METHOTREXATE [Concomitant]
     Active Substance: METHOTREXATE
     Route: 064
  277. METHOTREXATE [Concomitant]
     Active Substance: METHOTREXATE
     Route: 064
  278. METHOTREXATE [Concomitant]
     Active Substance: METHOTREXATE
     Route: 064
  279. METHOTREXATE [Concomitant]
     Active Substance: METHOTREXATE
     Route: 064
  280. METHOTREXATE [Concomitant]
     Active Substance: METHOTREXATE
     Route: 064
  281. PREDNISONE [Concomitant]
     Active Substance: PREDNISONE
     Indication: Product used for unknown indication
     Route: 064
  282. PREDNISONE [Concomitant]
     Active Substance: PREDNISONE
     Route: 064
  283. PREDNISONE [Concomitant]
     Active Substance: PREDNISONE
     Route: 064
  284. PREDNISONE [Concomitant]
     Active Substance: PREDNISONE
     Route: 064
  285. PREDNISONE [Concomitant]
     Active Substance: PREDNISONE
     Route: 064
  286. PREDNISONE [Concomitant]
     Active Substance: PREDNISONE
     Route: 064
  287. PREDNISONE [Concomitant]
     Active Substance: PREDNISONE
     Route: 064
  288. PREDNISONE [Concomitant]
     Active Substance: PREDNISONE
     Route: 064
  289. PREDNISONE [Concomitant]
     Active Substance: PREDNISONE
     Route: 064
  290. PREDNISONE [Concomitant]
     Active Substance: PREDNISONE
     Route: 064
  291. PREDNISONE [Concomitant]
     Active Substance: PREDNISONE
     Route: 064
  292. PREDNISONE [Concomitant]
     Active Substance: PREDNISONE
     Route: 064
  293. PREDNISONE [Concomitant]
     Active Substance: PREDNISONE
     Route: 064
  294. PREDNISONE [Concomitant]
     Active Substance: PREDNISONE
     Route: 064
  295. PREDNISONE [Concomitant]
     Active Substance: PREDNISONE
     Route: 064
  296. PREDNISONE [Concomitant]
     Active Substance: PREDNISONE
     Route: 064
  297. PREDNISONE [Concomitant]
     Active Substance: PREDNISONE
     Route: 064
  298. PREDNISONE [Concomitant]
     Active Substance: PREDNISONE
     Route: 064
  299. PREDNISONE [Concomitant]
     Active Substance: PREDNISONE
     Route: 064
  300. PREDNISONE [Concomitant]
     Active Substance: PREDNISONE
     Route: 064
  301. PREDNISONE [Concomitant]
     Active Substance: PREDNISONE
     Route: 064
  302. PREDNISONE [Concomitant]
     Active Substance: PREDNISONE
     Route: 064
  303. PREDNISONE [Concomitant]
     Active Substance: PREDNISONE
     Route: 064
  304. PREDNISONE [Concomitant]
     Active Substance: PREDNISONE
     Route: 064
  305. PREDNISONE [Concomitant]
     Active Substance: PREDNISONE
     Route: 064
  306. PSEUDOEPHEDRINE HYDROCHLORIDE [Concomitant]
     Active Substance: PSEUDOEPHEDRINE HYDROCHLORIDE
     Indication: Product used for unknown indication
     Route: 064
  307. PSEUDOEPHEDRINE HYDROCHLORIDE [Concomitant]
     Active Substance: PSEUDOEPHEDRINE HYDROCHLORIDE
     Route: 064
  308. PSEUDOEPHEDRINE HYDROCHLORIDE [Concomitant]
     Active Substance: PSEUDOEPHEDRINE HYDROCHLORIDE
     Route: 064
  309. PSEUDOEPHEDRINE HYDROCHLORIDE [Concomitant]
     Active Substance: PSEUDOEPHEDRINE HYDROCHLORIDE
     Route: 064
  310. PSEUDOEPHEDRINE HYDROCHLORIDE [Concomitant]
     Active Substance: PSEUDOEPHEDRINE HYDROCHLORIDE
     Route: 064
  311. PSEUDOEPHEDRINE HYDROCHLORIDE [Concomitant]
     Active Substance: PSEUDOEPHEDRINE HYDROCHLORIDE
     Route: 064
  312. PSEUDOEPHEDRINE HYDROCHLORIDE [Concomitant]
     Active Substance: PSEUDOEPHEDRINE HYDROCHLORIDE
     Route: 064
  313. PSEUDOEPHEDRINE HYDROCHLORIDE [Concomitant]
     Active Substance: PSEUDOEPHEDRINE HYDROCHLORIDE
     Route: 064
  314. REMICADE [Concomitant]
     Active Substance: INFLIXIMAB
     Indication: Product used for unknown indication
     Route: 064
  315. REMICADE [Concomitant]
     Active Substance: INFLIXIMAB
     Route: 064
  316. REMICADE [Concomitant]
     Active Substance: INFLIXIMAB
     Route: 064
  317. REMICADE [Concomitant]
     Active Substance: INFLIXIMAB
     Route: 064
  318. REMICADE [Concomitant]
     Active Substance: INFLIXIMAB
     Route: 064
  319. REMICADE [Concomitant]
     Active Substance: INFLIXIMAB
     Route: 064
  320. REMICADE [Concomitant]
     Active Substance: INFLIXIMAB
     Route: 064
  321. REMICADE [Concomitant]
     Active Substance: INFLIXIMAB
     Route: 064
  322. REMICADE [Concomitant]
     Active Substance: INFLIXIMAB
     Route: 064
  323. REMICADE [Concomitant]
     Active Substance: INFLIXIMAB
     Dosage: POWDER FOR SOLUTION FOR INJECTION/ INFUSION
     Route: 064
  324. REMICADE [Concomitant]
     Active Substance: INFLIXIMAB
     Dosage: POWDER FOR SOLUTION FOR INJECTION/ INFUSION
     Route: 064
  325. REMICADE [Concomitant]
     Active Substance: INFLIXIMAB
     Dosage: POWDER FOR SOLUTION FOR INJECTION/ INFUSION
     Route: 064
  326. REMICADE [Concomitant]
     Active Substance: INFLIXIMAB
     Route: 064
  327. REMICADE [Concomitant]
     Active Substance: INFLIXIMAB
     Route: 064
  328. RITUXIMAB [Concomitant]
     Active Substance: RITUXIMAB
     Indication: Product used for unknown indication
     Route: 064
  329. RITUXIMAB [Concomitant]
     Active Substance: RITUXIMAB
     Route: 064
  330. RITUXIMAB [Concomitant]
     Active Substance: RITUXIMAB
     Route: 064
  331. RITUXIMAB [Concomitant]
     Active Substance: RITUXIMAB
     Route: 064
  332. RITUXIMAB [Concomitant]
     Active Substance: RITUXIMAB
     Route: 064
  333. RITUXIMAB [Concomitant]
     Active Substance: RITUXIMAB
     Route: 064
  334. RITUXIMAB [Concomitant]
     Active Substance: RITUXIMAB
     Route: 064
  335. RITUXIMAB [Concomitant]
     Active Substance: RITUXIMAB
     Route: 064
  336. RITUXIMAB [Concomitant]
     Active Substance: RITUXIMAB
     Route: 064
  337. RITUXIMAB [Concomitant]
     Active Substance: RITUXIMAB
     Route: 064
  338. RITUXIMAB [Concomitant]
     Active Substance: RITUXIMAB
     Route: 064
  339. RITUXIMAB [Concomitant]
     Active Substance: RITUXIMAB
     Route: 064
  340. RITUXIMAB [Concomitant]
     Active Substance: RITUXIMAB
     Route: 064
  341. RITUXIMAB [Concomitant]
     Active Substance: RITUXIMAB
     Route: 064
  342. RITUXIMAB [Concomitant]
     Active Substance: RITUXIMAB
     Route: 064
  343. RITUXIMAB [Concomitant]
     Active Substance: RITUXIMAB
     Route: 064
  344. RITUXIMAB [Concomitant]
     Active Substance: RITUXIMAB
     Route: 064
  345. RITUXIMAB [Concomitant]
     Active Substance: RITUXIMAB
     Route: 064
  346. RITUXIMAB [Concomitant]
     Active Substance: RITUXIMAB
     Route: 064
  347. RITUXIMAB [Concomitant]
     Active Substance: RITUXIMAB
     Route: 064
  348. RITUXIMAB [Concomitant]
     Active Substance: RITUXIMAB
     Route: 064
  349. RITUXIMAB [Concomitant]
     Active Substance: RITUXIMAB
     Route: 064
  350. RITUXIMAB [Concomitant]
     Active Substance: RITUXIMAB
     Route: 064
  351. RITUXIMAB [Concomitant]
     Active Substance: RITUXIMAB
     Route: 064
  352. RITUXIMAB [Concomitant]
     Active Substance: RITUXIMAB
     Route: 064
  353. RITUXIMAB [Concomitant]
     Active Substance: RITUXIMAB
     Route: 064
  354. RITUXIMAB [Concomitant]
     Active Substance: RITUXIMAB
     Route: 064
  355. RITUXIMAB [Concomitant]
     Active Substance: RITUXIMAB
     Route: 064
  356. RITUXIMAB [Concomitant]
     Active Substance: RITUXIMAB
     Route: 064
  357. RITUXIMAB [Concomitant]
     Active Substance: RITUXIMAB
     Route: 064
  358. RITUXIMAB [Concomitant]
     Active Substance: RITUXIMAB
     Route: 064
  359. RITUXIMAB [Concomitant]
     Active Substance: RITUXIMAB
     Route: 064
  360. RITUXIMAB [Concomitant]
     Active Substance: RITUXIMAB
     Route: 064
  361. RITUXIMAB [Concomitant]
     Active Substance: RITUXIMAB
     Route: 064
  362. RITUXIMAB [Concomitant]
     Active Substance: RITUXIMAB
     Route: 064
  363. RITUXIMAB [Concomitant]
     Active Substance: RITUXIMAB
     Route: 064
  364. SIMPONI [Concomitant]
     Active Substance: GOLIMUMAB
     Indication: Product used for unknown indication
     Dosage: SOLUTION SUBCUTANEOUS
     Route: 064
  365. SIMPONI [Concomitant]
     Active Substance: GOLIMUMAB
     Route: 064
  366. SIMPONI [Concomitant]
     Active Substance: GOLIMUMAB
     Route: 064
  367. SIMPONI [Concomitant]
     Active Substance: GOLIMUMAB
     Route: 064
  368. SIMPONI [Concomitant]
     Active Substance: GOLIMUMAB
     Route: 064
  369. SIMPONI [Concomitant]
     Active Substance: GOLIMUMAB
     Route: 064
  370. SIMPONI [Concomitant]
     Active Substance: GOLIMUMAB
     Dosage: SOLUTION SUBCUTANEOUS
     Route: 064
  371. SIMPONI [Concomitant]
     Active Substance: GOLIMUMAB
     Dosage: SOLUTION SUBCUTANEOUS
     Route: 064
  372. SIMPONI [Concomitant]
     Active Substance: GOLIMUMAB
     Route: 064
  373. SIMPONI [Concomitant]
     Active Substance: GOLIMUMAB
     Route: 064
  374. GOLD SODIUM THIOMALATE [Concomitant]
     Active Substance: GOLD SODIUM THIOMALATE
     Indication: Product used for unknown indication
     Route: 064
  375. GOLD SODIUM THIOMALATE [Concomitant]
     Active Substance: GOLD SODIUM THIOMALATE
     Route: 064
  376. GOLD SODIUM THIOMALATE [Concomitant]
     Active Substance: GOLD SODIUM THIOMALATE
     Route: 064
  377. STELARA [Concomitant]
     Active Substance: USTEKINUMAB
     Indication: Product used for unknown indication
     Route: 064
  378. STELARA [Concomitant]
     Active Substance: USTEKINUMAB
     Route: 064
  379. SULFASALAZINE [Concomitant]
     Active Substance: SULFASALAZINE
     Indication: Product used for unknown indication
     Route: 064
  380. SULFASALAZINE [Concomitant]
     Active Substance: SULFASALAZINE
     Route: 064
  381. SULFASALAZINE [Concomitant]
     Active Substance: SULFASALAZINE
     Route: 064
  382. SULFASALAZINE [Concomitant]
     Active Substance: SULFASALAZINE
     Route: 064
  383. SULFASALAZINE [Concomitant]
     Active Substance: SULFASALAZINE
     Route: 064
  384. SULFASALAZINE [Concomitant]
     Active Substance: SULFASALAZINE
     Route: 064
  385. SULFASALAZINE [Concomitant]
     Active Substance: SULFASALAZINE
     Route: 064
  386. SULFASALAZINE [Concomitant]
     Active Substance: SULFASALAZINE
     Route: 064
  387. SULFASALAZINE [Concomitant]
     Active Substance: SULFASALAZINE
     Route: 064
  388. SULFASALAZINE [Concomitant]
     Active Substance: SULFASALAZINE
     Route: 064
  389. SULFASALAZINE [Concomitant]
     Active Substance: SULFASALAZINE
     Route: 064
  390. SULFASALAZINE [Concomitant]
     Active Substance: SULFASALAZINE
     Route: 064
  391. SULFASALAZINE [Concomitant]
     Active Substance: SULFASALAZINE
     Route: 064
  392. SULFASALAZINE [Concomitant]
     Active Substance: SULFASALAZINE
     Route: 064
  393. SULFASALAZINE [Concomitant]
     Active Substance: SULFASALAZINE
     Route: 064
  394. SULFASALAZINE [Concomitant]
     Active Substance: SULFASALAZINE
     Route: 064
  395. SULFASALAZINE [Concomitant]
     Active Substance: SULFASALAZINE
     Route: 064
  396. SULFASALAZINE [Concomitant]
     Active Substance: SULFASALAZINE
     Route: 064
  397. SULFASALAZINE [Concomitant]
     Active Substance: SULFASALAZINE
     Route: 064
  398. SULFASALAZINE [Concomitant]
     Active Substance: SULFASALAZINE
     Route: 064
  399. SULFASALAZINE [Concomitant]
     Active Substance: SULFASALAZINE
     Route: 064
  400. SULFASALAZINE [Concomitant]
     Active Substance: SULFASALAZINE
     Route: 064
  401. SULFASALAZINE [Concomitant]
     Active Substance: SULFASALAZINE
     Route: 064
  402. SULFASALAZINE [Concomitant]
     Active Substance: SULFASALAZINE
     Route: 064
  403. SULFASALAZINE [Concomitant]
     Active Substance: SULFASALAZINE
     Route: 064
  404. SULFASALAZINE [Concomitant]
     Active Substance: SULFASALAZINE
     Route: 064
  405. SULFASALAZINE [Concomitant]
     Active Substance: SULFASALAZINE
     Route: 064
  406. SULFASALAZINE [Concomitant]
     Active Substance: SULFASALAZINE
     Route: 064
  407. TOFACITINIB [Concomitant]
     Active Substance: TOFACITINIB
     Indication: Product used for unknown indication
     Route: 064
  408. TOFACITINIB [Concomitant]
     Active Substance: TOFACITINIB
     Route: 064
  409. TOFACITINIB [Concomitant]
     Active Substance: TOFACITINIB
     Route: 064
  410. TOFACITINIB [Concomitant]
     Active Substance: TOFACITINIB
     Route: 064
  411. PREDNISONE [Concomitant]
     Active Substance: PREDNISONE
     Indication: Product used for unknown indication
     Route: 064
  412. PREDNISONE [Concomitant]
     Active Substance: PREDNISONE
     Route: 064
  413. PREDNISONE [Concomitant]
     Active Substance: PREDNISONE
     Route: 064
  414. PREDNISONE [Concomitant]
     Active Substance: PREDNISONE
     Route: 064
  415. PREDNISONE [Concomitant]
     Active Substance: PREDNISONE
     Route: 064
  416. PREDNISONE [Concomitant]
     Active Substance: PREDNISONE
     Route: 064
  417. PREDNISONE [Concomitant]
     Active Substance: PREDNISONE
     Route: 064
  418. PREDNISONE [Concomitant]
     Active Substance: PREDNISONE
     Route: 064
  419. PREDNISONE [Concomitant]
     Active Substance: PREDNISONE
     Route: 064
  420. PREDNISONE [Concomitant]
     Active Substance: PREDNISONE
     Route: 064
  421. PREDNISONE [Concomitant]
     Active Substance: PREDNISONE
     Route: 064
  422. PREDNISONE [Concomitant]
     Active Substance: PREDNISONE
     Route: 064
  423. PREDNISONE [Concomitant]
     Active Substance: PREDNISONE
     Route: 064
  424. HYDROXYCHLOROQUINE [Concomitant]
     Active Substance: HYDROXYCHLOROQUINE
     Indication: Product used for unknown indication
     Route: 064
  425. HYDROXYCHLOROQUINE [Concomitant]
     Active Substance: HYDROXYCHLOROQUINE
     Route: 064
  426. HYDROXYCHLOROQUINE [Concomitant]
     Active Substance: HYDROXYCHLOROQUINE
     Route: 064
  427. HYDROXYCHLOROQUINE [Concomitant]
     Active Substance: HYDROXYCHLOROQUINE
     Route: 064
  428. HYDROXYCHLOROQUINE [Concomitant]
     Active Substance: HYDROXYCHLOROQUINE
     Route: 064
  429. HYDROXYCHLOROQUINE [Concomitant]
     Active Substance: HYDROXYCHLOROQUINE
     Route: 064
  430. HYDROXYCHLOROQUINE [Concomitant]
     Active Substance: HYDROXYCHLOROQUINE
     Route: 064
  431. HYDROXYCHLOROQUINE [Concomitant]
     Active Substance: HYDROXYCHLOROQUINE
     Route: 064
  432. HYDROXYCHLOROQUINE [Concomitant]
     Active Substance: HYDROXYCHLOROQUINE
     Route: 064
  433. HYDROXYCHLOROQUINE [Concomitant]
     Active Substance: HYDROXYCHLOROQUINE
     Route: 064
  434. HYDROXYCHLOROQUINE [Concomitant]
     Active Substance: HYDROXYCHLOROQUINE
     Route: 064
  435. HYDROXYCHLOROQUINE [Concomitant]
     Active Substance: HYDROXYCHLOROQUINE
     Route: 064
  436. HYDROXYCHLOROQUINE [Concomitant]
     Active Substance: HYDROXYCHLOROQUINE
     Route: 064
  437. HYDROXYCHLOROQUINE [Concomitant]
     Active Substance: HYDROXYCHLOROQUINE
     Route: 064
  438. HYDROXYCHLOROQUINE [Concomitant]
     Active Substance: HYDROXYCHLOROQUINE
     Route: 064
  439. HYDROXYCHLOROQUINE [Concomitant]
     Active Substance: HYDROXYCHLOROQUINE
     Route: 064
  440. HYDROXYCHLOROQUINE [Concomitant]
     Active Substance: HYDROXYCHLOROQUINE
     Route: 064
  441. HYDROXYCHLOROQUINE [Concomitant]
     Active Substance: HYDROXYCHLOROQUINE
     Route: 064
  442. HYDROXYCHLOROQUINE [Concomitant]
     Active Substance: HYDROXYCHLOROQUINE
     Route: 064
  443. HYDROXYCHLOROQUINE [Concomitant]
     Active Substance: HYDROXYCHLOROQUINE
     Route: 064
  444. HYDROXYCHLOROQUINE [Concomitant]
     Active Substance: HYDROXYCHLOROQUINE
     Route: 064
  445. HYDROXYCHLOROQUINE [Concomitant]
     Active Substance: HYDROXYCHLOROQUINE
     Route: 064
  446. HYDROXYCHLOROQUINE [Concomitant]
     Active Substance: HYDROXYCHLOROQUINE
     Route: 064
  447. HYDROXYCHLOROQUINE [Concomitant]
     Active Substance: HYDROXYCHLOROQUINE
     Route: 064
  448. HYDROXYCHLOROQUINE [Concomitant]
     Active Substance: HYDROXYCHLOROQUINE
     Route: 064
  449. HYDROXYCHLOROQUINE [Concomitant]
     Active Substance: HYDROXYCHLOROQUINE
     Route: 064
  450. HYDROXYCHLOROQUINE [Concomitant]
     Active Substance: HYDROXYCHLOROQUINE
     Route: 064
  451. HYDROXYCHLOROQUINE [Concomitant]
     Active Substance: HYDROXYCHLOROQUINE
     Route: 064
  452. HYDROXYCHLOROQUINE [Concomitant]
     Active Substance: HYDROXYCHLOROQUINE
     Route: 064
  453. HYDROXYCHLOROQUINE [Concomitant]
     Active Substance: HYDROXYCHLOROQUINE
     Route: 064
  454. HYDROXYCHLOROQUINE [Concomitant]
     Active Substance: HYDROXYCHLOROQUINE
     Route: 064
  455. HYDROXYCHLOROQUINE [Concomitant]
     Active Substance: HYDROXYCHLOROQUINE
     Route: 064
  456. HYDROXYCHLOROQUINE [Concomitant]
     Active Substance: HYDROXYCHLOROQUINE
     Route: 064
  457. HYDROXYCHLOROQUINE [Concomitant]
     Active Substance: HYDROXYCHLOROQUINE
     Route: 064
  458. HYDROXYCHLOROQUINE [Concomitant]
     Active Substance: HYDROXYCHLOROQUINE
     Route: 064
  459. HYDROXYCHLOROQUINE [Concomitant]
     Active Substance: HYDROXYCHLOROQUINE
     Route: 064
  460. ADALIMUMAB [Concomitant]
     Active Substance: ADALIMUMAB\ISOPROPYL ALCOHOL
     Indication: Product used for unknown indication
     Route: 064
  461. ADALIMUMAB [Concomitant]
     Active Substance: ADALIMUMAB\ISOPROPYL ALCOHOL
     Route: 064
  462. ADALIMUMAB [Concomitant]
     Active Substance: ADALIMUMAB\ISOPROPYL ALCOHOL
     Route: 064
  463. ADALIMUMAB [Concomitant]
     Active Substance: ADALIMUMAB\ISOPROPYL ALCOHOL
     Route: 064
  464. ADALIMUMAB [Concomitant]
     Active Substance: ADALIMUMAB\ISOPROPYL ALCOHOL
     Route: 064
  465. ADALIMUMAB [Concomitant]
     Active Substance: ADALIMUMAB\ISOPROPYL ALCOHOL
     Route: 064
  466. AIMOVIG [Concomitant]
     Active Substance: ERENUMAB-AOOE
     Indication: Product used for unknown indication
     Route: 064
  467. AIMOVIG [Concomitant]
     Active Substance: ERENUMAB-AOOE
     Route: 064
  468. CERTOLIZUMAB PEGOL [Concomitant]
     Active Substance: CERTOLIZUMAB PEGOL
     Indication: Product used for unknown indication
     Route: 064
  469. CERTOLIZUMAB PEGOL [Concomitant]
     Active Substance: CERTOLIZUMAB PEGOL
     Route: 064
  470. CERTOLIZUMAB PEGOL [Concomitant]
     Active Substance: CERTOLIZUMAB PEGOL
     Route: 064
  471. CERTOLIZUMAB PEGOL [Concomitant]
     Active Substance: CERTOLIZUMAB PEGOL
     Route: 064
  472. CERTOLIZUMAB PEGOL [Concomitant]
     Active Substance: CERTOLIZUMAB PEGOL
     Route: 064
  473. CERTOLIZUMAB PEGOL [Concomitant]
     Active Substance: CERTOLIZUMAB PEGOL
     Route: 064
  474. CORTISONE (HYDROCORTISONE) [Concomitant]
     Active Substance: HYDROCORTISONE
     Indication: Product used for unknown indication
     Route: 064
  475. CORTISONE (HYDROCORTISONE) [Concomitant]
     Active Substance: HYDROCORTISONE
     Route: 064
  476. CORTISONE (HYDROCORTISONE) [Concomitant]
     Active Substance: HYDROCORTISONE
     Route: 064
  477. HYDROXYCHLOROQUINE SULFATE [Concomitant]
     Active Substance: HYDROXYCHLOROQUINE SULFATE
     Indication: Product used for unknown indication
     Route: 064
  478. HYDROXYCHLOROQUINE SULFATE [Concomitant]
     Active Substance: HYDROXYCHLOROQUINE SULFATE
     Route: 064
  479. HYDROXYCHLOROQUINE SULFATE [Concomitant]
     Active Substance: HYDROXYCHLOROQUINE SULFATE
     Route: 064
  480. HYDROXYCHLOROQUINE SULFATE [Concomitant]
     Active Substance: HYDROXYCHLOROQUINE SULFATE
     Route: 064
  481. HYDROXYCHLOROQUINE SULFATE [Concomitant]
     Active Substance: HYDROXYCHLOROQUINE SULFATE
     Route: 064
  482. HYDROXYCHLOROQUINE SULFATE [Concomitant]
     Active Substance: HYDROXYCHLOROQUINE SULFATE
     Route: 064
  483. HYDROXYCHLOROQUINE SULFATE [Concomitant]
     Active Substance: HYDROXYCHLOROQUINE SULFATE
     Route: 064
  484. HYDROXYCHLOROQUINE SULFATE [Concomitant]
     Active Substance: HYDROXYCHLOROQUINE SULFATE
     Route: 064
  485. HYDROXYCHLOROQUINE SULFATE [Concomitant]
     Active Substance: HYDROXYCHLOROQUINE SULFATE
     Route: 064
  486. HYDROXYCHLOROQUINE SULFATE [Concomitant]
     Active Substance: HYDROXYCHLOROQUINE SULFATE
     Route: 064
  487. INFLIXIMAB [Concomitant]
     Active Substance: INFLIXIMAB
     Indication: Product used for unknown indication
     Route: 064
  488. INFLIXIMAB [Concomitant]
     Active Substance: INFLIXIMAB
     Route: 064
  489. INFLIXIMAB [Concomitant]
     Active Substance: INFLIXIMAB
     Route: 064
  490. PHTHALYLSULFATHIAZOLE [Concomitant]
     Active Substance: PHTHALYLSULFATHIAZOLE
     Indication: Product used for unknown indication
     Route: 064
  491. PHTHALYLSULFATHIAZOLE [Concomitant]
     Active Substance: PHTHALYLSULFATHIAZOLE
     Route: 064
  492. PHTHALYLSULFATHIAZOLE [Concomitant]
     Active Substance: PHTHALYLSULFATHIAZOLE
     Route: 064
  493. PHTHALYLSULFATHIAZOLE [Concomitant]
     Active Substance: PHTHALYLSULFATHIAZOLE
     Route: 064
  494. PHTHALYLSULFATHIAZOLE [Concomitant]
     Active Substance: PHTHALYLSULFATHIAZOLE
     Route: 064
  495. PHTHALYLSULFATHIAZOLE [Concomitant]
     Active Substance: PHTHALYLSULFATHIAZOLE
     Route: 064
  496. PHTHALYLSULFATHIAZOLE [Concomitant]
     Active Substance: PHTHALYLSULFATHIAZOLE
     Route: 064
  497. PHTHALYLSULFATHIAZOLE [Concomitant]
     Active Substance: PHTHALYLSULFATHIAZOLE
     Route: 064
  498. PHTHALYLSULFATHIAZOLE [Concomitant]
     Active Substance: PHTHALYLSULFATHIAZOLE
     Route: 064
  499. PHTHALYLSULFATHIAZOLE [Concomitant]
     Active Substance: PHTHALYLSULFATHIAZOLE
     Route: 064
  500. PHTHALYLSULFATHIAZOLE [Concomitant]
     Active Substance: PHTHALYLSULFATHIAZOLE
     Route: 064
  501. PHTHALYLSULFATHIAZOLE [Concomitant]
     Active Substance: PHTHALYLSULFATHIAZOLE
     Route: 064
  502. PHTHALYLSULFATHIAZOLE [Concomitant]
     Active Substance: PHTHALYLSULFATHIAZOLE
     Route: 064
  503. PHTHALYLSULFATHIAZOLE [Concomitant]
     Active Substance: PHTHALYLSULFATHIAZOLE
     Route: 064
  504. PHTHALYLSULFATHIAZOLE [Concomitant]
     Active Substance: PHTHALYLSULFATHIAZOLE
     Route: 064
  505. TOCILIZUMAB [Concomitant]
     Active Substance: TOCILIZUMAB
     Indication: Product used for unknown indication
     Route: 064
  506. TOCILIZUMAB [Concomitant]
     Active Substance: TOCILIZUMAB
     Route: 064
  507. TOCILIZUMAB [Concomitant]
     Active Substance: TOCILIZUMAB
     Route: 064
  508. TOCILIZUMAB [Concomitant]
     Active Substance: TOCILIZUMAB
     Route: 064
  509. TOCILIZUMAB [Concomitant]
     Active Substance: TOCILIZUMAB
     Route: 064
  510. TOCILIZUMAB [Concomitant]
     Active Substance: TOCILIZUMAB
     Route: 064
  511. TOCILIZUMAB [Concomitant]
     Active Substance: TOCILIZUMAB
     Route: 064
  512. TOCILIZUMAB [Concomitant]
     Active Substance: TOCILIZUMAB
     Route: 064
  513. TOCILIZUMAB [Concomitant]
     Active Substance: TOCILIZUMAB
     Route: 064
  514. TOCILIZUMAB [Concomitant]
     Active Substance: TOCILIZUMAB
     Route: 064
  515. TOCILIZUMAB [Concomitant]
     Active Substance: TOCILIZUMAB
     Route: 064
  516. TRAMADOL HYDROCHLORIDE [Concomitant]
     Active Substance: TRAMADOL HYDROCHLORIDE
     Indication: Product used for unknown indication
     Route: 064
  517. XELJANZ [Concomitant]
     Active Substance: TOFACITINIB CITRATE
     Indication: Product used for unknown indication
     Route: 064
  518. XELJANZ [Concomitant]
     Active Substance: TOFACITINIB CITRATE
     Route: 064
  519. XELJANZ [Concomitant]
     Active Substance: TOFACITINIB CITRATE
     Route: 064
  520. XELJANZ [Concomitant]
     Active Substance: TOFACITINIB CITRATE
     Route: 064
  521. XELJANZ [Concomitant]
     Active Substance: TOFACITINIB CITRATE
     Route: 064
  522. XELJANZ [Concomitant]
     Active Substance: TOFACITINIB CITRATE
     Route: 064
  523. XELJANZ [Concomitant]
     Active Substance: TOFACITINIB CITRATE
     Route: 064
  524. XELJANZ [Concomitant]
     Active Substance: TOFACITINIB CITRATE
     Route: 064
  525. XELJANZ [Concomitant]
     Active Substance: TOFACITINIB CITRATE
     Route: 064
  526. XELJANZ [Concomitant]
     Active Substance: TOFACITINIB CITRATE
     Route: 064
  527. XELJANZ [Concomitant]
     Active Substance: TOFACITINIB CITRATE
     Route: 064
  528. XELJANZ [Concomitant]
     Active Substance: TOFACITINIB CITRATE
     Route: 064
  529. XELJANZ [Concomitant]
     Active Substance: TOFACITINIB CITRATE
     Route: 064
  530. XELJANZ [Concomitant]
     Active Substance: TOFACITINIB CITRATE
     Route: 064
  531. XELJANZ [Concomitant]
     Active Substance: TOFACITINIB CITRATE
     Route: 064
  532. XELJANZ [Concomitant]
     Active Substance: TOFACITINIB CITRATE
     Route: 064
  533. XELJANZ [Concomitant]
     Active Substance: TOFACITINIB CITRATE
     Route: 064
  534. XELJANZ [Concomitant]
     Active Substance: TOFACITINIB CITRATE
     Route: 064
  535. XELJANZ [Concomitant]
     Active Substance: TOFACITINIB CITRATE
     Route: 064
  536. XELJANZ [Concomitant]
     Active Substance: TOFACITINIB CITRATE
     Route: 064
  537. XELJANZ [Concomitant]
     Active Substance: TOFACITINIB CITRATE
     Route: 064
  538. ACETAMINOPHEN [Concomitant]
     Active Substance: ACETAMINOPHEN
     Indication: Product used for unknown indication
     Route: 064
  539. TETRACYCLINE HYDROCHLORIDE [Concomitant]
     Active Substance: TETRACYCLINE HYDROCHLORIDE
     Indication: Product used for unknown indication
     Route: 064
  540. MINOCYCLINE [Concomitant]
     Active Substance: MINOCYCLINE HYDROCHLORIDE
     Indication: Product used for unknown indication
     Route: 064
  541. MINOCYCLINE [Concomitant]
     Active Substance: MINOCYCLINE HYDROCHLORIDE
     Route: 064
  542. MINOCYCLINE [Concomitant]
     Active Substance: MINOCYCLINE HYDROCHLORIDE
     Route: 064
  543. MINOCYCLINE HYDROCHLORIDE [Concomitant]
     Active Substance: MINOCYCLINE HYDROCHLORIDE
     Indication: Product used for unknown indication
     Route: 064
  544. MYOCHRYSINE [Concomitant]
     Active Substance: GOLD SODIUM THIOMALATE
     Indication: Product used for unknown indication
     Dosage: SOLUTION INTRAMUSCULAR
     Route: 064
  545. SIRUKUMAB [Concomitant]
     Active Substance: SIRUKUMAB
     Indication: Product used for unknown indication
     Route: 064
  546. SULFASALAZINE [Concomitant]
     Active Substance: SULFASALAZINE
     Indication: Product used for unknown indication
     Route: 064
  547. SULFASALAZINE [Concomitant]
     Active Substance: SULFASALAZINE
     Route: 064
  548. SARILUMAB [Concomitant]
     Active Substance: SARILUMAB
     Indication: Product used for unknown indication
     Route: 064
  549. TOFACITINIB CITRATE [Concomitant]
     Active Substance: TOFACITINIB CITRATE
     Indication: Product used for unknown indication
     Route: 064
  550. TOFACITINIB CITRATE [Concomitant]
     Active Substance: TOFACITINIB CITRATE
     Route: 064
  551. TOFACITINIB CITRATE [Concomitant]
     Active Substance: TOFACITINIB CITRATE
     Route: 064
  552. TOFACITINIB CITRATE [Concomitant]
     Active Substance: TOFACITINIB CITRATE
     Route: 064
  553. TOFACITINIB CITRATE [Concomitant]
     Active Substance: TOFACITINIB CITRATE
     Route: 064
  554. TOFACITINIB CITRATE [Concomitant]
     Active Substance: TOFACITINIB CITRATE
     Route: 064
  555. TOFACITINIB CITRATE [Concomitant]
     Active Substance: TOFACITINIB CITRATE
     Route: 064
  556. TOFACITINIB CITRATE [Concomitant]
     Active Substance: TOFACITINIB CITRATE
     Route: 064
  557. TOFACITINIB CITRATE [Concomitant]
     Active Substance: TOFACITINIB CITRATE
     Route: 064
  558. LEFLUNOMIDE [Concomitant]
     Active Substance: LEFLUNOMIDE
     Indication: Product used for unknown indication
     Route: 064
  559. LEFLUNOMIDE [Concomitant]
     Active Substance: LEFLUNOMIDE
     Route: 064
  560. LEFLUNOMIDE [Concomitant]
     Active Substance: LEFLUNOMIDE
     Route: 064
  561. LEFLUNOMIDE [Concomitant]
     Active Substance: LEFLUNOMIDE
     Route: 064
  562. LEFLUNOMIDE [Concomitant]
     Active Substance: LEFLUNOMIDE
     Route: 064
  563. LEFLUNOMIDE [Concomitant]
     Active Substance: LEFLUNOMIDE
     Route: 064
  564. AZATHIOPRINE SODIUM [Concomitant]
     Active Substance: AZATHIOPRINE SODIUM
     Indication: Product used for unknown indication
     Route: 064
  565. HYDROCORTISONE [Concomitant]
     Active Substance: HYDROCORTISONE
     Indication: Product used for unknown indication
     Route: 064
  566. METHYLPREDNISOLONE [Concomitant]
     Active Substance: METHYLPREDNISOLONE
     Indication: Product used for unknown indication
     Route: 064
  567. METHYLPREDNISOLONE [Concomitant]
     Active Substance: METHYLPREDNISOLONE
     Route: 064
  568. NAPROXEN [Concomitant]
     Active Substance: NAPROXEN
     Indication: Product used for unknown indication
     Route: 064
  569. NAPROXEN [Concomitant]
     Active Substance: NAPROXEN
     Route: 064
  570. NAPROXEN [Concomitant]
     Active Substance: NAPROXEN
     Route: 064
  571. PLAQUENIL [Concomitant]
     Active Substance: HYDROXYCHLOROQUINE SULFATE
     Indication: Product used for unknown indication
     Route: 064
  572. HYDROCORTISONE ACETATE [Concomitant]
     Active Substance: HYDROCORTISONE ACETATE
     Indication: Product used for unknown indication
     Route: 064
  573. ACETAMINOPHEN AND CODEINE [Concomitant]
     Active Substance: ACETAMINOPHEN\CODEINE PHOSPHATE
     Indication: Product used for unknown indication
     Route: 064
  574. ALENDRONIC ACID [Concomitant]
     Active Substance: ALENDRONIC ACID
     Indication: Product used for unknown indication
     Route: 064
  575. ALENDRONIC ACID [Concomitant]
     Active Substance: ALENDRONIC ACID
     Route: 064
  576. ALENDRONIC ACID [Concomitant]
     Active Substance: ALENDRONIC ACID
     Route: 064
  577. ALENDRONIC ACID [Concomitant]
     Active Substance: ALENDRONIC ACID
     Route: 064
  578. ALENDRONIC ACID [Concomitant]
     Active Substance: ALENDRONIC ACID
     Route: 064
  579. ALENDRONIC ACID [Concomitant]
     Active Substance: ALENDRONIC ACID
     Route: 064
  580. ALENDRONIC ACID [Concomitant]
     Active Substance: ALENDRONIC ACID
     Route: 064
  581. ALENDRONATE SODIUM\CHOLECALCIFEROL [Concomitant]
     Active Substance: ALENDRONATE SODIUM\CHOLECALCIFEROL
     Indication: Product used for unknown indication
     Route: 064
  582. DICLOFENAC SODIUM [Concomitant]
     Active Substance: DICLOFENAC\DICLOFENAC SODIUM
     Indication: Product used for unknown indication
     Route: 064
  583. DICLOFENAC SODIUM [Concomitant]
     Active Substance: DICLOFENAC\DICLOFENAC SODIUM
     Route: 064
  584. ATOMOXETINE [Concomitant]
     Active Substance: ATOMOXETINE\ATOMOXETINE HYDROCHLORIDE
     Indication: Product used for unknown indication
     Route: 064
  585. ATOMOXETINE [Concomitant]
     Active Substance: ATOMOXETINE\ATOMOXETINE HYDROCHLORIDE
     Route: 064
  586. BERINERT [Concomitant]
     Active Substance: HUMAN C1-ESTERASE INHIBITOR
     Indication: Product used for unknown indication
     Route: 064
  587. BOTULINUM TOXIN TYPE A [Concomitant]
     Active Substance: BOTULINUM TOXIN TYPE A
     Indication: Product used for unknown indication
     Dosage: POWDER FOR SOLUTION
     Route: 064
  588. BUTRANS [Concomitant]
     Active Substance: BUPRENORPHINE
     Indication: Product used for unknown indication
     Dosage: PATCH
     Route: 064
  589. CANDESARTAN [Concomitant]
     Active Substance: CANDESARTAN
     Indication: Product used for unknown indication
     Dosage: PATCH
     Route: 064
  590. CANDESARTAN [Concomitant]
     Active Substance: CANDESARTAN
     Route: 064
  591. CELEBREX [Concomitant]
     Active Substance: CELECOXIB
     Indication: Product used for unknown indication
     Route: 064
  592. CELEBREX [Concomitant]
     Active Substance: CELECOXIB
     Route: 064
  593. DICLOFENAC DIETHYLAMINE [Concomitant]
     Active Substance: DICLOFENAC DIETHYLAMINE
     Indication: Product used for unknown indication
     Route: 064
  594. DOMPERIDONE MALEATE [Concomitant]
     Active Substance: DOMPERIDONE MALEATE
     Indication: Product used for unknown indication
     Route: 064
  595. FLUMETHASONE [Concomitant]
     Active Substance: FLUMETHASONE
     Indication: Product used for unknown indication
     Route: 064
  596. GOLD [Concomitant]
     Active Substance: GOLD
     Indication: Product used for unknown indication
     Route: 064
  597. HAIR KERATIN AMINO ACIDS GOLD COMPLEX [Concomitant]
     Active Substance: HAIR KERATIN AMINO ACIDS GOLD COMPLEX
     Indication: Product used for unknown indication
     Route: 064
  598. GOLIMUMAB [Concomitant]
     Active Substance: GOLIMUMAB
     Indication: Product used for unknown indication
     Route: 064
  599. GOLIMUMAB [Concomitant]
     Active Substance: GOLIMUMAB
     Route: 064
  600. GOLIMUMAB [Concomitant]
     Active Substance: GOLIMUMAB
     Route: 064
  601. GOLIMUMAB [Concomitant]
     Active Substance: GOLIMUMAB
     Route: 064
  602. LAMICTAL [Concomitant]
     Active Substance: LAMOTRIGINE
     Indication: Product used for unknown indication
     Route: 064
  603. LAMICTAL [Concomitant]
     Active Substance: LAMOTRIGINE
     Route: 064
  604. MEGLUMINE [Concomitant]
     Active Substance: MEGLUMINE
     Indication: Product used for unknown indication
     Route: 064
  605. METHYLPREDNISOLONE SODIUM SUCCINATE [Concomitant]
     Active Substance: METHYLPREDNISOLONE SODIUM SUCCINATE
     Indication: Product used for unknown indication
     Route: 064
  606. MYRBETRIQ [Concomitant]
     Active Substance: MIRABEGRON
     Indication: Product used for unknown indication
     Route: 064
  607. MYRBETRIQ [Concomitant]
     Active Substance: MIRABEGRON
     Route: 064
  608. MYRBETRIQ [Concomitant]
     Active Substance: MIRABEGRON
     Route: 064
  609. MYRBETRIQ [Concomitant]
     Active Substance: MIRABEGRON
     Route: 064
  610. NAPROXEN [Concomitant]
     Active Substance: NAPROXEN
     Indication: Product used for unknown indication
     Route: 064
  611. NAPROXEN SODIUM [Concomitant]
     Active Substance: NAPROXEN\NAPROXEN SODIUM
     Indication: Product used for unknown indication
     Route: 064
  612. NUCALA [Concomitant]
     Active Substance: MEPOLIZUMAB
     Indication: Product used for unknown indication
     Route: 064
  613. OXYCODONE [Concomitant]
     Active Substance: OXYCODONE\OXYCODONE HYDROCHLORIDE
     Indication: Product used for unknown indication
     Route: 064
  614. OXYCODONE TEREPHTHALATE [Concomitant]
     Active Substance: OXYCODONE TEREPHTHALATE
     Indication: Product used for unknown indication
     Route: 064
  615. PHENYLEPHRINE HYDROCHLORIDE [Concomitant]
     Active Substance: PHENYLEPHRINE HYDROCHLORIDE
     Indication: Product used for unknown indication
     Route: 064
  616. RAMIPRIL [Concomitant]
     Active Substance: RAMIPRIL
     Indication: Product used for unknown indication
     Route: 064
  617. RAMIPRIL [Concomitant]
     Active Substance: RAMIPRIL
     Route: 064
  618. RAMIPRIL [Concomitant]
     Active Substance: RAMIPRIL
     Route: 064
  619. RANITIDINE [Concomitant]
     Active Substance: RANITIDINE
     Indication: Product used for unknown indication
     Route: 064
  620. CETIRIZINE HYDROCHLORIDE\PSEUDOEPHEDRINE HYDROCHLORIDE [Concomitant]
     Active Substance: CETIRIZINE HYDROCHLORIDE\PSEUDOEPHEDRINE HYDROCHLORIDE
     Indication: Product used for unknown indication
     Route: 064
  621. CETIRIZINE HYDROCHLORIDE\PSEUDOEPHEDRINE HYDROCHLORIDE [Concomitant]
     Active Substance: CETIRIZINE HYDROCHLORIDE\PSEUDOEPHEDRINE HYDROCHLORIDE
     Route: 064
  622. CETIRIZINE HYDROCHLORIDE\PSEUDOEPHEDRINE HYDROCHLORIDE [Concomitant]
     Active Substance: CETIRIZINE HYDROCHLORIDE\PSEUDOEPHEDRINE HYDROCHLORIDE
     Route: 064
  623. CETIRIZINE HYDROCHLORIDE\PSEUDOEPHEDRINE HYDROCHLORIDE [Concomitant]
     Active Substance: CETIRIZINE HYDROCHLORIDE\PSEUDOEPHEDRINE HYDROCHLORIDE
     Route: 064
  624. CETIRIZINE HYDROCHLORIDE\PSEUDOEPHEDRINE HYDROCHLORIDE [Concomitant]
     Active Substance: CETIRIZINE HYDROCHLORIDE\PSEUDOEPHEDRINE HYDROCHLORIDE
     Route: 064
  625. CETIRIZINE HYDROCHLORIDE\PSEUDOEPHEDRINE HYDROCHLORIDE [Concomitant]
     Active Substance: CETIRIZINE HYDROCHLORIDE\PSEUDOEPHEDRINE HYDROCHLORIDE
     Route: 064
  626. CETIRIZINE HYDROCHLORIDE\PSEUDOEPHEDRINE HYDROCHLORIDE [Concomitant]
     Active Substance: CETIRIZINE HYDROCHLORIDE\PSEUDOEPHEDRINE HYDROCHLORIDE
     Dosage: EXTENDED RELEASE
     Route: 064
  627. TOPIRAMATE [Concomitant]
     Active Substance: TOPIRAMATE
     Indication: Product used for unknown indication
     Route: 064
  628. TOPIRAMATE [Concomitant]
     Active Substance: TOPIRAMATE
     Route: 064
  629. TOPIRAMATE [Concomitant]
     Active Substance: TOPIRAMATE
     Route: 064
  630. USTEKINUMAB [Concomitant]
     Active Substance: USTEKINUMAB
     Indication: Product used for unknown indication
     Route: 064
  631. USTEKINUMAB [Concomitant]
     Active Substance: USTEKINUMAB
     Route: 064
  632. USTEKINUMAB [Concomitant]
     Active Substance: USTEKINUMAB
     Route: 064
  633. VITAMIN C [Concomitant]
     Active Substance: ASCORBIC ACID
     Indication: Product used for unknown indication
     Route: 064
  634. VITAMIN C [Concomitant]
     Active Substance: ASCORBIC ACID
     Route: 064
  635. VITAMIN C [Concomitant]
     Active Substance: ASCORBIC ACID
     Route: 064
  636. VITAMIN C [Concomitant]
     Active Substance: ASCORBIC ACID
     Dosage: VITAMIN C ASCORBIC?ACID TAB 1000MG
     Route: 064
  637. VITAMIN D3 [Concomitant]
     Active Substance: CHOLECALCIFEROL
     Indication: Product used for unknown indication
     Route: 064
  638. VITAMIN D3 [Concomitant]
     Active Substance: CHOLECALCIFEROL
     Route: 064
  639. TRAMADOL HYDROCHLORIDE [Concomitant]
     Active Substance: TRAMADOL HYDROCHLORIDE
     Indication: Product used for unknown indication
     Route: 064
  640. AZATHIOPRINE [Concomitant]
     Active Substance: AZATHIOPRINE
     Indication: Product used for unknown indication
     Route: 064
  641. CETIRIZINE [Concomitant]
     Active Substance: CETIRIZINE HYDROCHLORIDE
     Indication: Product used for unknown indication
     Route: 064
  642. CETIRIZINE [Concomitant]
     Active Substance: CETIRIZINE HYDROCHLORIDE
     Route: 064
  643. CETIRIZINE [Concomitant]
     Active Substance: CETIRIZINE HYDROCHLORIDE
     Route: 064
  644. PERIOGARD [Concomitant]
     Active Substance: CHLORHEXIDINE GLUCONATE
     Indication: Product used for unknown indication
     Route: 064
  645. PSEUDOEPHEDRINE [Concomitant]
     Active Substance: PSEUDOEPHEDRINE
     Indication: Product used for unknown indication
     Route: 064
  646. SULFAMETHOXAZOLE AND TRIMETHOPRIM [Concomitant]
     Active Substance: SULFAMETHOXAZOLE\TRIMETHOPRIM
     Indication: Product used for unknown indication
     Route: 064
  647. DESOGESTREL\ETHINYL ESTRADIOL [Concomitant]
     Active Substance: DESOGESTREL\ETHINYL ESTRADIOL
     Indication: Product used for unknown indication
     Route: 064
  648. OTEZLA [Concomitant]
     Active Substance: APREMILAST
     Indication: Product used for unknown indication
     Route: 064
  649. CALCIUM ASCORBATE [Concomitant]
     Active Substance: CALCIUM ASCORBATE
     Indication: Product used for unknown indication
     Route: 064
  650. CALCIUM CARBONATE [Concomitant]
     Active Substance: CALCIUM CARBONATE
     Indication: Product used for unknown indication
     Route: 064
  651. CALCIUM GLUBIONATE [Concomitant]
     Active Substance: CALCIUM GLUBIONATE
     Indication: Product used for unknown indication
     Route: 064
  652. CALCIUM GLUBIONATE [Concomitant]
     Active Substance: CALCIUM GLUBIONATE
     Route: 064
  653. CHLORHEXIDINE GLUCONATE [Concomitant]
     Active Substance: CHLORHEXIDINE GLUCONATE
     Indication: Product used for unknown indication
     Route: 064
  654. CHLORHEXIDINE GLUCONATE [Concomitant]
     Active Substance: CHLORHEXIDINE GLUCONATE
     Route: 064
  655. ERGOCALCIFEROL [Concomitant]
     Active Substance: ERGOCALCIFEROL
     Indication: Product used for unknown indication
     Route: 064
  656. NICOTINAMIDE [Concomitant]
     Active Substance: NIACINAMIDE
     Indication: Product used for unknown indication
     Route: 064
  657. THIAMINE HYDROCHLORIDE [Concomitant]
     Active Substance: THIAMINE HYDROCHLORIDE
     Indication: Product used for unknown indication
     Route: 064
  658. THIAMINE HYDROCHLORIDE [Concomitant]
     Active Substance: THIAMINE HYDROCHLORIDE
     Route: 064
  659. THIAMINE HYDROCHLORIDE [Concomitant]
     Active Substance: THIAMINE HYDROCHLORIDE
     Route: 064
  660. ZINC [Concomitant]
     Active Substance: PYRITHIONE ZINC\ZINC\ZINC CHLORIDE
     Indication: Product used for unknown indication
     Route: 064
  661. HYDROCORTISONE BUTYRATE [Concomitant]
     Active Substance: HYDROCORTISONE BUTYRATE
     Indication: Product used for unknown indication
     Route: 064
  662. MAGNESIUM CITRATE [Concomitant]
     Active Substance: MAGNESIUM CITRATE
     Indication: Product used for unknown indication
     Route: 064
  663. ACETAMINOPHEN\CODEINE PHOSPHATE [Concomitant]
     Active Substance: ACETAMINOPHEN\CODEINE PHOSPHATE
     Indication: Product used for unknown indication
     Route: 064
  664. ACETAMINOPHEN\CODEINE PHOSPHATE [Concomitant]
     Active Substance: ACETAMINOPHEN\CODEINE PHOSPHATE
     Dosage: ELIXIR ACETAMINOPHEN +COD.PHOS.ELX,USP160 MG-8MG/5M
     Route: 064
  665. ALENDRONATE SODIUM\CHOLECALCIFEROL [Concomitant]
     Active Substance: ALENDRONATE SODIUM\CHOLECALCIFEROL
     Indication: Product used for unknown indication
     Route: 064
  666. ATOMOXETINE HYDROCHLORIDE [Concomitant]
     Active Substance: ATOMOXETINE HYDROCHLORIDE
     Indication: Product used for unknown indication
     Route: 064
  667. RANITIDINE HYDROCHLORIDE [Concomitant]
     Active Substance: RANITIDINE HYDROCHLORIDE
     Indication: Product used for unknown indication
     Route: 064

REACTIONS (2)
  - Congenital anomaly [Unknown]
  - Foetal exposure during pregnancy [Unknown]
